FAERS Safety Report 7720435-9 (Version None)
Quarter: 2011Q3

REPORT INFORMATION
  Report Type: 
  Country: None (occurrence: None)
  Receive Date: 20110825
  Receipt Date: 20110810
  Transmission Date: 20111222
  Serious: Yes (Life-Threatening)
  Sender: FDA-Public Use
  Company Number: TCI2011A04209

PATIENT
  Age: 76 Year
  Sex: Male

DRUGS (9)
  1. GLUFAST (MITIGLINIDE CALCIUM) [Concomitant]
  2. NOVORAPID 30 MIX (INSULIN ASPART) [Concomitant]
  3. ACTOS [Suspect]
     Indication: INSULIN RESISTANCE
     Dosage: 30 MG (15 MG,2 IN 1 D) PER ORAL, 15 MG (15 MG,L IN 1 D), PER ORAL
     Route: 048
     Dates: start: 20071027, end: 20110524
  4. ACTOS [Suspect]
     Indication: TYPE 2 DIABETES MELLITUS
     Dosage: 30 MG (15 MG,2 IN 1 D) PER ORAL, 15 MG (15 MG,L IN 1 D), PER ORAL
     Route: 048
     Dates: start: 20071027, end: 20110524
  5. ACTOS [Suspect]
     Indication: INSULIN RESISTANCE
     Dosage: 30 MG (15 MG,2 IN 1 D) PER ORAL, 15 MG (15 MG,L IN 1 D), PER ORAL
     Route: 048
     Dates: start: 20031007, end: 20031021
  6. ACTOS [Suspect]
     Indication: TYPE 2 DIABETES MELLITUS
     Dosage: 30 MG (15 MG,2 IN 1 D) PER ORAL, 15 MG (15 MG,L IN 1 D), PER ORAL
     Route: 048
     Dates: start: 20031007, end: 20031021
  7. BENJIX (VOGLIBOSE) [Concomitant]
  8. SEIBULE (MIGLITOL) [Concomitant]
  9. DIAGLICO (GLICLAZIDE) [Concomitant]

REACTIONS (1)
  - BLADDER TRANSITIONAL CELL CARCINOMA [None]
